FAERS Safety Report 24927535 (Version 1)
Quarter: 2025Q1

REPORT INFORMATION
  Report Type: Spontaneous
  Country: US (occurrence: None)
  Receive Date: 20250204
  Receipt Date: 20250204
  Transmission Date: 20250409
  Serious: Yes (Other)
  Sender: FDA-CTU
  Company Number: None

PATIENT
  Age: 35 Year
  Sex: Female
  Weight: 122.47 kg

DRUGS (6)
  1. SERTRALINE [Suspect]
     Active Substance: SERTRALINE HYDROCHLORIDE
  2. BUSPIRONE [Concomitant]
     Active Substance: BUSPIRONE HYDROCHLORIDE
  3. LAMOTRIGINE [Concomitant]
     Active Substance: LAMOTRIGINE
  4. BUPROPION [Concomitant]
     Active Substance: BUPROPION
  5. Valocydovir [Concomitant]
  6. LEVOTHYROXINE [Concomitant]
     Active Substance: LEVOTHYROXINE

REACTIONS (9)
  - Pre-eclampsia [None]
  - Maternal exposure during pregnancy [None]
  - Peripartum cardiomyopathy [None]
  - Bradycardia [None]
  - Ventricular extrasystoles [None]
  - Left ventricular dilatation [None]
  - Hypokinesia [None]
  - Mitral valve incompetence [None]
  - Diastolic dysfunction [None]

NARRATIVE: CASE EVENT DATE: 20220130
